FAERS Safety Report 15106847 (Version 2)
Quarter: 2018Q4

REPORT INFORMATION
  Report Type: Spontaneous
  Country: US (occurrence: US)
  Receive Date: 20180704
  Receipt Date: 20181129
  Transmission Date: 20190204
  Serious: No
  Sender: FDA-Public Use
  Company Number: US-SA-2018SA170498

PATIENT
  Age: 74 Year
  Sex: Female

DRUGS (2)
  1. DUPIXENT [Suspect]
     Active Substance: DUPILUMAB
     Indication: PSORIASIS
     Dosage: 600 MG, 1X
     Route: 058
     Dates: start: 20180516, end: 20180516
  2. DUPIXENT [Suspect]
     Active Substance: DUPILUMAB
     Dosage: 300 MG, QOW
     Dates: end: 20180530

REACTIONS (5)
  - Drug ineffective [Unknown]
  - Injection site rash [Recovered/Resolved]
  - Off label use [Unknown]
  - Injection site bruising [Recovered/Resolved]
  - Eyelid disorder [Unknown]

NARRATIVE: CASE EVENT DATE: 20180516
